FAERS Safety Report 7771424-X (Version None)
Quarter: 2011Q3

REPORT INFORMATION
  Report Type: 
  Country: None (occurrence: None)
  Receive Date: 20110922
  Receipt Date: 20110504
  Transmission Date: 20111222
  Serious: Yes (Hospitalization)
  Sender: FDA-Public Use
  Company Number: US-ASTRAZENECA-2010SE33945

PATIENT
  Age: 14923 Day
  Sex: Female

DRUGS (16)
  1. PLACEBO [Suspect]
     Indication: EMBOLISM ARTERIAL
     Route: 048
     Dates: start: 20100122
  2. NEURONTIN [Concomitant]
  3. MARIJUANA [Concomitant]
  4. SEROQUEL [Suspect]
     Route: 048
  5. BACLOFEN [Concomitant]
  6. IBUPROFEN [Concomitant]
  7. APIXABAN [Suspect]
     Indication: EMBOLISM ARTERIAL
     Route: 048
     Dates: start: 20100122
  8. BENADRYL [Concomitant]
  9. ENOXAPARIN SODIUM [Suspect]
     Indication: EMBOLISM
     Route: 058
  10. AGGRENOX [Concomitant]
  11. FOLIC ACID [Concomitant]
  12. WARFARIN SODIUM [Suspect]
     Indication: EMBOLISM
     Route: 048
  13. CYMBALTA [Concomitant]
  14. LORAZEPAM [Concomitant]
  15. OXYCODONE HCL [Concomitant]
  16. AVONEX [Concomitant]

REACTIONS (3)
  - EXTRAPYRAMIDAL DISORDER [None]
  - DEEP VEIN THROMBOSIS [None]
  - PNEUMONIA [None]
